FAERS Safety Report 4830196-9 (Version None)
Quarter: 2005Q4

REPORT INFORMATION
  Report Type: 
  Country: None (occurrence: None)
  Receive Date: 20051115
  Receipt Date: 20051115
  Transmission Date: 20060501
  Serious: No
  Sender: FDA-Public Use
  Company Number: None

PATIENT
  Sex: Male
  Weight: 84 kg

DRUGS (2)
  1. SUBOXONE [Suspect]
     Indication: DRUG DETOXIFICATION
     Dosage: 1 TAB SL BID
     Route: 060
     Dates: start: 20051003, end: 20051005
  2. CLONIDINE [Concomitant]

REACTIONS (3)
  - EYE SWELLING [None]
  - OEDEMA PERIPHERAL [None]
  - WEIGHT INCREASED [None]
